FAERS Safety Report 24367944 (Version 1)
Quarter: 2024Q3

REPORT INFORMATION
  Report Type: Spontaneous
  Country: PL (occurrence: PL)
  Receive Date: 20240926
  Receipt Date: 20240926
  Transmission Date: 20241016
  Serious: Yes (Hospitalization, Other)
  Sender: ABBVIE
  Company Number: None

PATIENT
  Age: 66 Year
  Sex: Female

DRUGS (4)
  1. HUMIRA [Suspect]
     Active Substance: ADALIMUMAB
     Indication: Ankylosing spondylitis
     Dosage: HUMIRA 40 MG
     Route: 058
     Dates: start: 2013, end: 201705
  2. HUMIRA [Suspect]
     Active Substance: ADALIMUMAB
     Indication: Colitis ulcerative
  3. HUMIRA [Suspect]
     Active Substance: ADALIMUMAB
     Indication: Spinal osteoarthritis
  4. HUMIRA [Suspect]
     Active Substance: ADALIMUMAB
     Indication: Uveitis

REACTIONS (8)
  - Aphthous ulcer [Unknown]
  - Oral mucosa erosion [Unknown]
  - Diarrhoea [Unknown]
  - Tongue neoplasm malignant stage unspecified [Unknown]
  - Inflammatory marker increased [Unknown]
  - Malaise [Unknown]
  - Rash pruritic [Unknown]
  - Platelet anisocytosis [Unknown]

NARRATIVE: CASE EVENT DATE: 20151215
